FAERS Safety Report 8014385-0 (Version None)
Quarter: 2011Q4

REPORT INFORMATION
  Report Type: 
  Country: None (occurrence: None)
  Receive Date: 20111229
  Receipt Date: 20111220
  Transmission Date: 20120403
  Serious: Yes (Hospitalization, Other)
  Sender: FDA-Public Use
  Company Number: PHHY2011US50015

PATIENT
  Sex: Male
  Weight: 117.1 kg

DRUGS (21)
  1. SIMVASTATIN [Concomitant]
     Dosage: 80 MG, UNK
  2. MIRALAX [Concomitant]
     Dosage: 17 G, UNK
     Route: 048
  3. CATAPRES-TTS-1 [Concomitant]
  4. FINASTERIDE [Concomitant]
     Dosage: UNK UKN, UNK
  5. VIDAZA [Concomitant]
     Indication: MYELODYSPLASTIC SYNDROME
  6. GEMFIBROZIL [Concomitant]
     Dosage: 600 MG, BID
  7. LANTUS [Concomitant]
     Dosage: 66 U, BID
  8. TERAZOSIN HCL [Concomitant]
     Dosage: UNK UKN, UNK
  9. LISINOPRIL [Concomitant]
     Dosage: 40 MG, BID
  10. DILTIAZEM HCL [Concomitant]
     Dosage: 240 MG, DAILY
  11. BUMETANIDE [Concomitant]
     Dosage: 2 MG, BID
  12. POTASSIUM CHLORIDE [Concomitant]
     Dosage: UNK UKN, UNK
  13. HELIOX [Concomitant]
     Dosage: UNK UKN, UNK
  14. EXJADE [Suspect]
     Indication: HAEMOCHROMATOSIS
     Dosage: 2250 MG, DAILY
     Route: 048
     Dates: start: 20110411
  15. PREDNISOLONE [Concomitant]
     Dosage: 20 MG, DAILY
     Route: 048
  16. ALPRAZOLAM [Concomitant]
     Dosage: 1 MG, UNK
  17. AMLODIPINE [Concomitant]
     Dosage: 10 MG, DAILY
  18. CARVEDILOL [Concomitant]
     Dosage: 25 MG, BID
     Route: 048
  19. EXJADE [Suspect]
     Indication: LYMPHOPROLIFERATIVE DISORDER
  20. EXJADE [Suspect]
     Indication: MAGNESIUM METABOLISM DISORDER
  21. CLOBETASOL PROPIONATE [Concomitant]
     Dosage: UNK UKN, UNK

REACTIONS (18)
  - FLUID OVERLOAD [None]
  - FATIGUE [None]
  - ASTHENIA [None]
  - PYREXIA [None]
  - NEOPLASM PROGRESSION [None]
  - HYPOXIA [None]
  - THROMBOCYTOPENIA [None]
  - PNEUMONIA [None]
  - RENAL FAILURE ACUTE [None]
  - PULMONARY CONGESTION [None]
  - LEUKOPENIA [None]
  - HYPOGLYCAEMIA [None]
  - CARDIOMEGALY [None]
  - NEOPLASM MALIGNANT [None]
  - INTERSTITIAL LUNG DISEASE [None]
  - ACUTE RESPIRATORY FAILURE [None]
  - DYSPNOEA [None]
  - ANAEMIA [None]
